FAERS Safety Report 26174936 (Version 1)
Quarter: 2025Q4

REPORT INFORMATION
  Report Type: Spontaneous
  Country: CN (occurrence: CN)
  Receive Date: 20251218
  Receipt Date: 20251218
  Transmission Date: 20260118
  Serious: Yes (Hospitalization)
  Sender: ALEXION PHARMACEUTICALS
  Company Number: CN-ASTRAZENECA-202512CHN010916CN

PATIENT
  Age: 68 Year
  Sex: Male

DRUGS (2)
  1. TAGRISSO [Suspect]
     Active Substance: OSIMERTINIB
     Indication: Neoplasm malignant
     Dosage: 160 MILLIGRAM, QD
     Route: 061
     Dates: start: 20240601, end: 20251210
  2. CAPMATINIB [Suspect]
     Active Substance: CAPMATINIB
     Indication: Neoplasm malignant
     Dosage: 300 MILLIGRAM, QD
     Route: 061
     Dates: start: 20240601, end: 20251210

REACTIONS (2)
  - Vomiting [Recovering/Resolving]
  - Palpitations [Recovering/Resolving]

NARRATIVE: CASE EVENT DATE: 20251209
